FAERS Safety Report 25379575 (Version 1)
Quarter: 2025Q2

REPORT INFORMATION
  Report Type: Spontaneous
  Country: US (occurrence: None)
  Receive Date: 20250529
  Receipt Date: 20250529
  Transmission Date: 20250717
  Serious: Yes (Disabling)
  Sender: FDA-CTU
  Company Number: None

PATIENT
  Age: 60 Year
  Sex: Female
  Weight: 60.3 kg

DRUGS (1)
  1. ZOLOFT [Suspect]
     Active Substance: SERTRALINE HYDROCHLORIDE
     Route: 048
     Dates: start: 19900501, end: 20200801

REACTIONS (15)
  - Withdrawal syndrome [None]
  - Influenza [None]
  - Anger [None]
  - Anxiety [None]
  - Fatigue [None]
  - Amnesia [None]
  - Brain fog [None]
  - Hyperacusis [None]
  - Suicidal ideation [None]
  - Palpitations [None]
  - Oropharyngeal pain [None]
  - Myalgia [None]
  - Ligament pain [None]
  - Paraesthesia [None]
  - Alopecia [None]

NARRATIVE: CASE EVENT DATE: 20200810
